FAERS Safety Report 5902308-7 (Version None)
Quarter: 2008Q3

REPORT INFORMATION
  Report Type: 
  Country: None (occurrence: None)
  Receive Date: 20080919
  Receipt Date: 20080804
  Transmission Date: 20090109
  Serious: No
  Sender: FDA-Public Use
  Company Number: US-WYE-H05386408

PATIENT
  Age: 74 Year
  Sex: Female
  Weight: 62.65 kg

DRUGS (3)
  1. PRISTIQ [Suspect]
     Indication: DEPRESSION
     Dosage: WHOLE TABLET, ORAL : 1/2 TABLET, ORAL
     Route: 048
     Dates: start: 20080101, end: 20080101
  2. PRISTIQ [Suspect]
     Indication: DEPRESSION
     Dosage: WHOLE TABLET, ORAL : 1/2 TABLET, ORAL
     Route: 048
     Dates: start: 20080101
  3. AMBIEN [Concomitant]

REACTIONS (3)
  - DYSPNOEA [None]
  - THROAT TIGHTNESS [None]
  - VISION BLURRED [None]
